FAERS Safety Report 8043041-8 (Version None)
Quarter: 2012Q1

REPORT INFORMATION
  Report Type: 
  Country: None (occurrence: None)
  Receive Date: 20120112
  Receipt Date: 20120106
  Transmission Date: 20120608
  Serious: Yes (Life-Threatening, Hospitalization, Other)
  Sender: FDA-Public Use
  Company Number: PHFR2011GB04261

PATIENT
  Sex: Male

DRUGS (7)
  1. AMLODIPINE [Concomitant]
     Dosage: 10 MG, UNK
     Route: 048
  2. SIMVASTATIN [Concomitant]
     Dosage: 40 MG, DAILY
     Route: 048
  3. HYOSCINE HYDROBROMIDE [Concomitant]
     Dosage: 900 UG, DAILY
     Route: 048
  4. FUROSEMIDE [Concomitant]
     Dosage: 40 MG, UNK
     Route: 048
  5. METFORMIN HCL [Concomitant]
     Dosage: 2000 UG, DAILY
     Route: 048
  6. CLOZARIL [Suspect]
     Dosage: 300 MG, DAILY
     Route: 048
     Dates: start: 20060101, end: 20110729
  7. TAMSULOSIN HCL [Concomitant]
     Dosage: 400 UG, DAILY
     Route: 048

REACTIONS (11)
  - SPEECH DISORDER [None]
  - THIRST [None]
  - DYSPNOEA [None]
  - CONFUSIONAL STATE [None]
  - VOMITING [None]
  - BLOOD CREATINE PHOSPHOKINASE INCREASED [None]
  - HYPERHIDROSIS [None]
  - RHABDOMYOLYSIS [None]
  - INTESTINAL OBSTRUCTION [None]
  - DIABETES MELLITUS [None]
  - OVERWEIGHT [None]
